FAERS Safety Report 14502610 (Version 1)
Quarter: 2018Q1

REPORT INFORMATION
  Report Type: Spontaneous
  Country: AU (occurrence: AU)
  Receive Date: 20180208
  Receipt Date: 20180208
  Transmission Date: 20180509
  Serious: Yes (Other)
  Sender: FDA-Public Use
  Company Number: AU-AMGEN-AUSSP2017188029

PATIENT
  Age: 59 Year
  Sex: Male

DRUGS (3)
  1. ENBREL [Suspect]
     Active Substance: ETANERCEPT
     Indication: RHEUMATOID ARTHRITIS
     Dosage: 50 MG, WEEKLY
     Route: 058
     Dates: start: 201702, end: 20171120
  2. METHOTREXATE. [Concomitant]
     Active Substance: METHOTREXATE
     Indication: RHEUMATOID ARTHRITIS
     Dosage: 10 MG, WEEKLY
  3. PLAQUENIL [Concomitant]
     Active Substance: HYDROXYCHLOROQUINE SULFATE
     Indication: RHEUMATOID ARTHRITIS
     Dosage: 100 MG, UNK

REACTIONS (19)
  - Headache [Unknown]
  - Insomnia [Not Recovered/Not Resolved]
  - Injection site urticaria [Recovered/Resolved]
  - Decreased appetite [Unknown]
  - Injection site warmth [Recovered/Resolved]
  - Discomfort [Unknown]
  - Fatigue [Not Recovered/Not Resolved]
  - Lymphadenopathy [Unknown]
  - Apathy [Not Recovered/Not Resolved]
  - Malaise [Unknown]
  - Weight decreased [Recovered/Resolved]
  - Dry skin [Unknown]
  - Night sweats [Not Recovered/Not Resolved]
  - Rash [Unknown]
  - Hypersensitivity [Unknown]
  - Anaemia [Not Recovered/Not Resolved]
  - Skin irritation [Unknown]
  - Product quality issue [Unknown]
  - Injection site hypersensitivity [Recovered/Resolved]

NARRATIVE: CASE EVENT DATE: 20171023
